FAERS Safety Report 7597469-0 (Version None)
Quarter: 2011Q3

REPORT INFORMATION
  Report Type: 
  Country: None (occurrence: None)
  Receive Date: 20110708
  Receipt Date: 20110701
  Transmission Date: 20111222
  Serious: Yes (Hospitalization)
  Sender: FDA-Public Use
  Company Number: GB-GILEAD-2011-0039932

PATIENT
  Sex: Male

DRUGS (12)
  1. RANEXA [Suspect]
     Dates: start: 20110506, end: 20110522
  2. AMLODIPINE [Concomitant]
     Route: 048
  3. NICORANDIL [Concomitant]
     Route: 048
  4. SIMVASTATIN [Suspect]
     Dates: start: 20060701, end: 20110522
  5. ISOSORBIDE MONONITRATE [Concomitant]
     Route: 048
  6. ASPIRIN [Concomitant]
     Route: 048
  7. NITROGLYCERIN [Concomitant]
     Route: 060
  8. NAFTIDROFURYL [Concomitant]
     Route: 048
  9. CARVEDILOL [Concomitant]
     Route: 048
  10. RAMIPRIL [Concomitant]
     Route: 048
  11. TRIMETHOPRIM [Concomitant]
     Indication: URINARY TRACT INFECTION
     Route: 048
     Dates: start: 20110520, end: 20110522
  12. RANEXA [Suspect]
     Indication: ANGINA PECTORIS
     Route: 048
     Dates: start: 20110407, end: 20110522

REACTIONS (3)
  - DRUG INTERACTION [None]
  - BLOOD CREATINE PHOSPHOKINASE INCREASED [None]
  - RHABDOMYOLYSIS [None]
